FAERS Safety Report 5999685-8 (Version None)
Quarter: 2008Q4

REPORT INFORMATION
  Report Type: 
  Country: None (occurrence: None)
  Receive Date: 20081211
  Receipt Date: 20081211
  Transmission Date: 20090506
  Serious: Yes (Life-Threatening, Hospitalization)
  Sender: FDA-Public Use
  Company Number: None

PATIENT
  Age: 49 Year
  Sex: Male

DRUGS (2)
  1. TRASTUZUMAB - DOSE UNKNOWN [Suspect]
     Indication: BREAST CANCER
  2. PACLITAXEL [Suspect]
     Indication: BREAST CANCER

REACTIONS (4)
  - BLOOD PRESSURE INCREASED [None]
  - DYSPNOEA [None]
  - EJECTION FRACTION DECREASED [None]
  - STRESS [None]
